FAERS Safety Report 4667673-X (Version None)
Quarter: 2005Q2

REPORT INFORMATION
  Report Type: 
  Country: None (occurrence: None)
  Receive Date: 20050519
  Receipt Date: 20050519
  Transmission Date: 20051028
  Serious: Yes (Hospitalization)
  Sender: FDA-Public Use
  Company Number: None

PATIENT
  Age: 26 Year
  Sex: Female
  Weight: 51.7101 kg

DRUGS (1)
  1. EFFEXOR XR [Suspect]
     Dosage: 150 MG QD ORAL
     Route: 048
     Dates: start: 20041201, end: 20050518

REACTIONS (5)
  - ACCIDENTAL OVERDOSE [None]
  - GRAND MAL CONVULSION [None]
  - HEADACHE [None]
  - MIGRAINE [None]
  - TREATMENT NONCOMPLIANCE [None]
